FAERS Safety Report 7944606-1 (Version None)
Quarter: 2011Q4

REPORT INFORMATION
  Report Type: 
  Country: None (occurrence: None)
  Receive Date: 20111114
  Receipt Date: 20110812
  Transmission Date: 20120403
  Serious: No
  Sender: FDA-Public Use
  Company Number: 1000022861

PATIENT
  Age: 40 Year
  Sex: Female

DRUGS (5)
  1. RESTORIL (TEMAZEPAM) (TEMAZEPAM) [Concomitant]
  2. NORCO (HYDROCODONE, ACETAMINOPHEN) (HYDROCODONE, ACETAMINOPHEN) [Concomitant]
  3. SAVELLA [Suspect]
     Indication: FIBROMYALGIA
     Dosage: 100 MG, (50 MG, 2 IN 1 D), ORAL
     Route: 048
     Dates: start: 20101201, end: 20101201
  4. SAVELLA [Suspect]
     Indication: FIBROMYALGIA
     Dosage: 12.5 MG (12.5 MG, 1 IN 1 D), ORAL; 25 MG (12.5 MG, 2 IN 1 D), ORAL; 50 MG (25 MG, 2 IN 1 D), ORAL
     Route: 048
     Dates: start: 20101201, end: 20101201
  5. LEVOTHYROXINE (LEVOTHYROXINE SODIUM) (LEVOTHYROXINE SODIUM) [Concomitant]

REACTIONS (2)
  - DIARRHOEA [None]
  - NAUSEA [None]
